FAERS Safety Report 8987812 (Version 1)
Quarter: 2012Q4

REPORT INFORMATION
  Report Type: 
  Country: US (occurrence: US)
  Receive Date: 20121227
  Receipt Date: 20121227
  Transmission Date: 20130627
  Serious: No
  Sender: FDA-Public Use
  Company Number: US-ASTRAZENECA-2012SE93636

PATIENT
  Age: 24594 Day
  Sex: Female
  Weight: 72.1 kg

DRUGS (1)
  1. BRILINTA [Suspect]
     Route: 048
     Dates: start: 20121209

REACTIONS (1)
  - Pruritus [Not Recovered/Not Resolved]
